FAERS Safety Report 6426916-2 (Version None)
Quarter: 2009Q4

REPORT INFORMATION
  Report Type: 
  Country: None (occurrence: None)
  Receive Date: 20091104
  Receipt Date: 20091006
  Transmission Date: 20100525
  Serious: No
  Sender: FDA-Public Use
  Company Number: US-BAYER-200915431BCC

PATIENT
  Age: 85 Year
  Sex: Female
  Weight: 64 kg

DRUGS (4)
  1. ALEVE (CAPLET) [Suspect]
     Indication: BACK PAIN
     Dosage: TOTAL DAILY DOSE: 440 MG  UNIT DOSE: 220 MG
     Route: 048
     Dates: start: 20091004
  2. SYNTHROID [Concomitant]
  3. PAXIL [Concomitant]
  4. LIPITOR [Concomitant]

REACTIONS (1)
  - ABDOMINAL DISCOMFORT [None]
